FAERS Safety Report 5518860-X (Version None)
Quarter: 2007Q4

REPORT INFORMATION
  Report Type: 
  Country: None (occurrence: None)
  Receive Date: 20071113
  Receipt Date: 20071029
  Transmission Date: 20080405
  Serious: Yes (Hospitalization, Other)
  Sender: FDA-Public Use
  Company Number: B0493716A

PATIENT
  Age: 20 Year
  Sex: Female

DRUGS (2)
  1. PAROXETINE HCL [Suspect]
     Indication: MAJOR DEPRESSION
     Dosage: ORAL
     Route: 048
  2. SERTRALINE HYROCHLORIDE (FORMULATION UNKNOWN) (SERTRALINE HYDROCHLORID [Suspect]
     Dosage: ORAL
     Route: 048

REACTIONS (8)
  - ACTIVATION SYNDROME [None]
  - AFFECT LABILITY [None]
  - HYPOMANIA [None]
  - MAJOR DEPRESSION [None]
  - MANIA [None]
  - NO THERAPEUTIC RESPONSE [None]
  - SELF MUTILATION [None]
  - SUICIDAL IDEATION [None]
